FAERS Safety Report 4697354-8 (Version None)
Quarter: 2005Q2

REPORT INFORMATION
  Report Type: 
  Country: None (occurrence: None)
  Receive Date: 20050621
  Receipt Date: 20050613
  Transmission Date: 20051028
  Serious: Yes (Death)
  Sender: FDA-Public Use
  Company Number: 2005S1000125

PATIENT
  Sex: 0

DRUGS (1)
  1. CUBICIN [Suspect]
     Dosage: Q48H

REACTIONS (1)
  - PYREXIA [None]
